FAERS Safety Report 10953249 (Version 1)
Quarter: 2015Q1

REPORT INFORMATION
  Report Type: Spontaneous
  Country: US (occurrence: None)
  Receive Date: 20150226
  Receipt Date: 20150226
  Transmission Date: 20150721
  Serious: Yes (Life-Threatening)
  Sender: FDA-Public Use
  Company Number: TPA2010A02039

PATIENT
  Age: 62 Year
  Sex: Female

DRUGS (7)
  1. ATENOLOL. [Concomitant]
     Active Substance: ATENOLOL
  2. ACTOS [Suspect]
     Active Substance: PIOGLITAZONE HYDROCHLORIDE
     Indication: TYPE 2 DIABETES MELLITUS
     Dosage: 1 IN 1 D
     Route: 048
     Dates: start: 20090317
  3. PROZAC [Concomitant]
     Active Substance: FLUOXETINE HYDROCHLORIDE
  4. DIOVAN [Concomitant]
     Active Substance: VALSARTAN
  5. ZOCOR [Concomitant]
     Active Substance: SIMVASTATIN
  6. LISINOPRIL/ HCT (HYDROCHLOROTHIAZIDE, LISINOPRIL) [Concomitant]
  7. BYETTA (ALL OTHER THERAPEUTIC PRODUCTS) [Concomitant]

REACTIONS (4)
  - Oedema peripheral [None]
  - Brain natriuretic peptide increased [None]
  - Cardiac failure congestive [None]
  - Dyspnoea [None]
